FAERS Safety Report 5693856-6 (Version None)
Quarter: 2008Q2

REPORT INFORMATION
  Report Type: 
  Country: None (occurrence: None)
  Receive Date: 20080403
  Receipt Date: 20080327
  Transmission Date: 20081010
  Serious: Yes (Hospitalization, Other)
  Sender: FDA-Public Use
  Company Number: US-ABBOTT-08P-163-0444714-00

PATIENT
  Sex: Male
  Weight: 115.32 kg

DRUGS (12)
  1. SYNTHROID [Suspect]
     Indication: PITUITARY TUMOUR BENIGN
     Route: 048
     Dates: start: 19880101, end: 20070301
  2. SYNTHROID [Suspect]
     Dosage: NEW PRESCRIPTION
     Route: 048
     Dates: start: 20070301, end: 20080301
  3. SYNTHROID [Suspect]
     Route: 048
     Dates: start: 20080328
  4. ANDERGEL [Concomitant]
     Indication: HORMONE REPLACEMENT THERAPY
     Route: 061
  5. HYDROCORTISONE [Concomitant]
     Indication: HORMONE REPLACEMENT THERAPY
     Route: 048
  6. HYDROCHLOROTHIAZIDE [Concomitant]
     Indication: DIURETIC THERAPY
     Route: 048
  7. VERAPAMIL [Concomitant]
     Indication: CARDIAC DISORDER
     Route: 048
  8. GABAPENTIN [Concomitant]
     Indication: PAIN
     Route: 048
  9. TERRASIM [Concomitant]
     Indication: DRUG USE FOR UNKNOWN INDICATION
     Route: 048
  10. POTASSIUM CHLORIDE [Concomitant]
     Indication: MINERAL SUPPLEMENTATION
     Route: 048
  11. ACETYLSALICYLIC ACID SRT [Concomitant]
     Indication: PROPHYLAXIS
     Route: 048
  12. LEXIPRIL [Concomitant]
     Indication: DEPRESSION
     Route: 048

REACTIONS (17)
  - ARTHRALGIA [None]
  - BACK PAIN [None]
  - CHEST PAIN [None]
  - DEHYDRATION [None]
  - DYSPNOEA [None]
  - ERYTHEMA [None]
  - GASTROINTESTINAL INFECTION [None]
  - JOINT STIFFNESS [None]
  - MYALGIA [None]
  - NEUROPATHY PERIPHERAL [None]
  - OCULAR HYPERAEMIA [None]
  - PAIN IN EXTREMITY [None]
  - PROSTATE CANCER [None]
  - PRURITUS [None]
  - RASH MACULAR [None]
  - SLEEP APNOEA SYNDROME [None]
  - SLEEP DISORDER [None]
